FAERS Safety Report 12190627 (Version 1)
Quarter: 2016Q1

REPORT INFORMATION
  Report Type: Spontaneous
  Country: US (occurrence: US)
  Receive Date: 20160318
  Receipt Date: 20160318
  Transmission Date: 20160526
  Serious: No
  Sender: FDA-Public Use
  Company Number: US-GLAXOSMITHKLINE-US2016GSK038197

PATIENT
  Sex: Female
  Weight: 86.17 kg

DRUGS (10)
  1. DULOXETINE. [Suspect]
     Active Substance: DULOXETINE
     Indication: INTENTIONAL SELF-INJURY
  2. VENLAFAXINE HYDROCHLORIDE. [Suspect]
     Active Substance: VENLAFAXINE HYDROCHLORIDE
     Indication: POST-TRAUMATIC STRESS DISORDER
     Dosage: 150 MG, QD
  3. DULOXETINE. [Suspect]
     Active Substance: DULOXETINE
     Indication: ANXIETY
  4. DIAZEPAM. [Concomitant]
     Active Substance: DIAZEPAM
     Indication: ANXIETY
     Dosage: 10 MG, TID
     Dates: end: 2014
  5. DULOXETINE. [Suspect]
     Active Substance: DULOXETINE
     Indication: DEPRESSION
  6. WELLBUTRIN [Suspect]
     Active Substance: BUPROPION HYDROCHLORIDE
     Indication: PRODUCT USED FOR UNKNOWN INDICATION
     Dosage: 40 MG, QD
  7. DULOXETINE. [Suspect]
     Active Substance: DULOXETINE
     Indication: OBSESSIVE-COMPULSIVE DISORDER
  8. TEMAZEPAM. [Concomitant]
     Active Substance: TEMAZEPAM
     Indication: INSOMNIA
     Dosage: 30 MG, QD
  9. DULOXETINE. [Suspect]
     Active Substance: DULOXETINE
     Indication: POST-TRAUMATIC STRESS DISORDER
     Dosage: 60 MG, QD
     Route: 048
     Dates: start: 201407
  10. VENLAFAXINE HYDROCHLORIDE. [Suspect]
     Active Substance: VENLAFAXINE HYDROCHLORIDE
     Indication: OBSESSIVE-COMPULSIVE DISORDER

REACTIONS (16)
  - Feeling abnormal [Unknown]
  - Agitation [Unknown]
  - Nausea [Not Recovered/Not Resolved]
  - Muscle spasms [Unknown]
  - Anal incontinence [Not Recovered/Not Resolved]
  - Weight increased [Not Recovered/Not Resolved]
  - Aggression [Unknown]
  - Urinary incontinence [Not Recovered/Not Resolved]
  - Restless legs syndrome [Not Recovered/Not Resolved]
  - Abnormal behaviour [Unknown]
  - Headache [Not Recovered/Not Resolved]
  - Loss of libido [Not Recovered/Not Resolved]
  - Potentiating drug interaction [Recovered/Resolved]
  - Insomnia [Unknown]
  - Amnesia [Not Recovered/Not Resolved]
  - Attention deficit/hyperactivity disorder [Unknown]
